FAERS Safety Report 9198487 (Version 4)
Quarter: 2013Q3

REPORT INFORMATION
  Report Type: Report from Study
  Country: GR (occurrence: GR)
  Receive Date: 20130329
  Receipt Date: 20130712
  Transmission Date: 20140515
  Serious: Yes (Death, Hospitalization)
  Sender: FDA-Public Use
  Company Number: GR-AMGEN-GRCCT2013021583

PATIENT
  Age: 75 Year
  Sex: Male
  Weight: 53 kg

DRUGS (12)
  1. PANITUMUMAB [Suspect]
     Indication: COLORECTAL CANCER METASTATIC
     Dosage: 477 MG, Q3WK
     Route: 042
     Dates: start: 20130305, end: 20130305
  2. OXALIPLATIN [Concomitant]
     Indication: COLORECTAL CANCER METASTATIC
     Dosage: 200 MG, UNK
     Route: 042
     Dates: start: 20130305
  3. XELODA [Concomitant]
     Indication: COLORECTAL CANCER METASTATIC
     Dosage: 3000 MG, UNK
     Route: 048
     Dates: start: 20130303, end: 20130314
  4. PLAVIX [Concomitant]
     Indication: CARDIOVASCULAR DISORDER
     Dosage: 75 MG, UNK
     Route: 048
     Dates: end: 20130314
  5. IMDUR [Concomitant]
     Indication: CARDIOVASCULAR DISORDER
     Dosage: 30 MG, UNK
     Route: 048
     Dates: end: 20130314
  6. VASTAREL [Concomitant]
     Indication: CARDIOVASCULAR DISORDER
     Dosage: 10 MG, UNK
     Route: 048
     Dates: end: 20130314
  7. LOPRESSOR [Concomitant]
     Indication: CARDIOVASCULAR DISORDER
     Dosage: 50 MG, UNK
     Route: 048
     Dates: end: 20130314
  8. JANUMET [Concomitant]
     Indication: DIABETES MELLITUS
     Dosage: 50 MG, QD
     Route: 048
     Dates: end: 20130314
  9. ATORVASTATIN [Concomitant]
     Indication: HYPERCHOLESTEROLAEMIA
     Dosage: 20 MG, QD
     Route: 048
     Dates: end: 20130314
  10. PANTOPRAZOLE [Concomitant]
     Indication: PROPHYLAXIS
     Dosage: 40 MG, UNK
     Route: 048
     Dates: end: 20130314
  11. XATRAL [Concomitant]
     Indication: BENIGN PROSTATIC HYPERPLASIA
     Dosage: 2.5 MG, UNK
     Route: 048
     Dates: end: 20130314
  12. TRIATEC [Concomitant]
     Indication: CARDIOVASCULAR DISORDER
     Dosage: 2.5 MG, QD
     Route: 048
     Dates: end: 20130314

REACTIONS (2)
  - Sudden death [Fatal]
  - Neutropenia [Not Recovered/Not Resolved]
